FAERS Safety Report 9230133 (Version 1)
Quarter: 2013Q2

REPORT INFORMATION
  Report Type: Spontaneous
  Country: US (occurrence: US)
  Receive Date: 20130415
  Receipt Date: 20130415
  Transmission Date: 20140414
  Serious: No
  Sender: FDA-Public Use
  Company Number: US-BAYER-2013-044208

PATIENT
  Age: 59 Year
  Sex: Female

DRUGS (1)
  1. CLIMARA [Suspect]
     Indication: SLEEP DISORDER
     Dosage: UNK
     Route: 062
     Dates: start: 2005

REACTIONS (3)
  - Off label use [None]
  - Drug ineffective for unapproved indication [None]
  - Drug administration error [None]
